FAERS Safety Report 7262451-X (Version None)
Quarter: 2011Q1

REPORT INFORMATION
  Report Type: 
  Country: None (occurrence: None)
  Receive Date: 20110130
  Receipt Date: 20101118
  Transmission Date: 20110831
  Serious: No
  Sender: FDA-Public Use
  Company Number: US-ABBOTT-10P-163-0686441-00

PATIENT
  Age: 29 Year
  Sex: Male

DRUGS (5)
  1. MERIVA [Concomitant]
     Indication: INFLAMMATION
     Dosage: DAILY
  2. X-EIRMAN [Concomitant]
     Indication: GASTROINTESTINAL DISORDER
     Dosage: DAILY
  3. VITAMIN D [Concomitant]
     Indication: VITAMIN SUPPLEMENTATION
     Dosage: 6 TEASPOONS DAILY
  4. IODINE [Concomitant]
     Indication: IODINE UPTAKE ABNORMAL
     Dosage: DAILY
  5. HUMIRA [Suspect]
     Indication: PSORIASIS
     Dates: start: 20081101

REACTIONS (3)
  - INJECTION SITE HAEMORRHAGE [None]
  - DRUG DOSE OMISSION [None]
  - DEVICE MALFUNCTION [None]
